FAERS Safety Report 5914151-3 (Version None)
Quarter: 2008Q3

REPORT INFORMATION
  Report Type: 
  Country: None (occurrence: None)
  Receive Date: 20080909
  Receipt Date: 20080116
  Transmission Date: 20090109
  Serious: Yes (Other)
  Sender: FDA-Public Use
  Company Number: 163-20785-08010986

PATIENT
  Age: 82 Year
  Sex: Male
  Weight: 77.1115 kg

DRUGS (8)
  1. THALOMID [Suspect]
     Indication: MULTIPLE MYELOMA
     Dosage: 100 MG, 1 IN 1 D, ORAL
     Route: 048
     Dates: start: 20070627, end: 20080115
  2. MELPHALAN (MELPHALAN) (PILL) [Concomitant]
  3. PREDNISONE (PREDNISONE) (PILL) [Concomitant]
  4. PRILOSEC [Concomitant]
  5. COUMADIN [Concomitant]
  6. ULTRAM [Concomitant]
  7. DILTIAZEM [Concomitant]
  8. NORVASC [Concomitant]

REACTIONS (1)
  - DEEP VEIN THROMBOSIS [None]
